FAERS Safety Report 5320973-2 (Version None)
Quarter: 2007Q2

REPORT INFORMATION
  Report Type: 
  Country: None (occurrence: None)
  Receive Date: 20070510
  Receipt Date: 20070501
  Transmission Date: 20071010
  Serious: Yes (Other)
  Sender: FDA-Public Use
  Company Number: PHFR2007GB01494

PATIENT
  Age: 73 Year
  Sex: Male

DRUGS (16)
  1. CYCLOSPORINE [Suspect]
     Indication: HEART TRANSPLANT
     Route: 065
  2. HERBAL EXTRACTS NOS [Suspect]
     Indication: DIABETES MELLITUS
     Dosage: 2 DF, TID
     Route: 048
     Dates: start: 20060502
  3. CALCIUM W/VITAMIN D NOS [Concomitant]
     Dosage: 400 IU, QD
     Route: 065
  4. ACETYLSALICYLIC ACID SRT [Concomitant]
     Dosage: 75 MG, QD
     Route: 065
  5. CLOPIDOGREL [Concomitant]
     Dosage: 75 MG, QD
     Route: 065
  6. FOSAMAX [Concomitant]
     Dosage: 70 MG, QW
     Route: 065
  7. FUROSEMIDE [Concomitant]
     Dosage: 40 MG, BID
     Route: 048
  8. HUMULIN M3 [Concomitant]
     Dates: end: 20060512
  9. LANSOPRAZOLE [Concomitant]
     Dosage: 15 MG, QD
     Route: 048
  10. MYCOPHENOLATE MOFETIL [Concomitant]
     Dosage: 500 MG, BID
     Route: 048
  11. NEORAL [Suspect]
     Indication: HEART TRANSPLANT
     Dosage: 25 MG, QD
     Route: 048
  12. NEORAL [Suspect]
     Dosage: 50 MG, QD
     Route: 048
  13. PARACETAMOL [Concomitant]
     Route: 065
  14. PREDNISOLONE [Concomitant]
     Dosage: 1 MG, TID
     Route: 065
  15. QUININE SULFATE [Concomitant]
     Dosage: 200 MG, QD
     Route: 065
  16. SIMVASTATIN [Concomitant]
     Dosage: 10 MG, QD

REACTIONS (15)
  - BLOOD ALKALINE PHOSPHATASE INCREASED [None]
  - BLOOD CREATININE INCREASED [None]
  - BLOOD GLUCOSE INCREASED [None]
  - BLOOD PRESSURE INCREASED [None]
  - DIABETIC NEPHROPATHY [None]
  - DRUG INTERACTION [None]
  - DRUG LEVEL DECREASED [None]
  - FLATULENCE [None]
  - GAMMA-GLUTAMYLTRANSFERASE INCREASED [None]
  - HAEMATURIA [None]
  - KIDNEY SMALL [None]
  - LIVER FUNCTION TEST ABNORMAL [None]
  - NEPHROPATHY TOXIC [None]
  - PROTEINURIA [None]
  - RENAL FAILURE CHRONIC [None]
